FAERS Safety Report 6116617 (Version 3)
Quarter: 2013Q3

REPORT INFORMATION
  Report Type: Spontaneous
  Country: BE (occurrence: BE)
  Receive Date: 20060828
  Receipt Date: 20130812
  Transmission Date: 20140515
  Serious: Yes (Other)
  Sender: FDA-Public Use
  Company Number: BE-BRISTOL-MYERS SQUIBB COMPANY-13414628

PATIENT
  Age: 65 Year
  Sex: Male

DRUGS (6)
  1. ATAZANAVIR [Suspect]
     Indication: HIV INFECTION
     Dosage: DOSE DECREASED FROM 300 MG/DAY TO 150 MG/DAY ON 07-JUN-2006.
     Route: 048
     Dates: start: 20060607
  2. VIREAD [Suspect]
     Indication: HIV INFECTION
     Dates: start: 20030425, end: 20060607
  3. EPIVER [Concomitant]
     Indication: HIV INFECTION
     Dates: start: 19970507
  4. NORVIR [Concomitant]
     Indication: HIV INFECTION
     Dates: start: 20031105
  5. TENOFOVIR DISOPROXIL FUMARATE [Concomitant]
     Indication: HIV INFECTION
  6. LAMIVUDINE [Concomitant]
     Indication: HIV INFECTION

REACTIONS (2)
  - Renal failure [Not Recovered/Not Resolved]
  - Nephrolithiasis [Recovering/Resolving]
